FAERS Safety Report 12639879 (Version 8)
Quarter: 2017Q4

REPORT INFORMATION
  Report Type: Spontaneous
  Country: US (occurrence: US)
  Receive Date: 20160810
  Receipt Date: 20171225
  Transmission Date: 20180320
  Serious: Yes (Congenital Anomaly, Other)
  Sender: FDA-Public Use
  Company Number: PHHY2015US127268

PATIENT
  Sex: Male

DRUGS (2)
  1. ZOFRAN [Suspect]
     Active Substance: ONDANSETRON HYDROCHLORIDE
     Indication: FOETAL EXPOSURE DURING PREGNANCY
     Dosage: MOTHER DOSE: 4 MG, UNK
     Route: 064
  2. ONDANSETRON HYDROCHLORIDE. [Suspect]
     Active Substance: ONDANSETRON HYDROCHLORIDE
     Indication: FOETAL EXPOSURE DURING PREGNANCY
     Route: 064

REACTIONS (33)
  - Left-to-right cardiac shunt [Unknown]
  - Heart disease congenital [Unknown]
  - Right atrial enlargement [Unknown]
  - Bronchiolitis [Unknown]
  - Otitis media [Unknown]
  - Chest pain [Unknown]
  - Atrioventricular block first degree [Unknown]
  - Dyslipidaemia [Unknown]
  - Pyrexia [Unknown]
  - Symbolic dysfunction [Unknown]
  - Impetigo [Unknown]
  - Pericardial effusion [Unknown]
  - Pleural effusion [Unknown]
  - Atelectasis [Unknown]
  - Jaundice [Unknown]
  - Tonsillitis [Unknown]
  - Wound [Unknown]
  - Pneumonia [Unknown]
  - Hyperlipidaemia [Unknown]
  - Congenital tricuspid valve incompetence [Unknown]
  - Anomalous pulmonary venous connection [Unknown]
  - Foetal exposure during pregnancy [Unknown]
  - Cardiac murmur [Unknown]
  - Speech disorder [Unknown]
  - Atrial septal defect [Unknown]
  - Pneumonitis [Unknown]
  - Polyuria [Unknown]
  - Upper respiratory tract infection [Unknown]
  - Attention deficit/hyperactivity disorder [Unknown]
  - Respiratory failure [Unknown]
  - Right ventricular dilatation [Unknown]
  - Fall [Unknown]
  - Laceration [Unknown]
